FAERS Safety Report 6842392-X (Version None)
Quarter: 2010Q3

REPORT INFORMATION
  Report Type: 
  Country: None (occurrence: None)
  Receive Date: 20100714
  Receipt Date: 20070730
  Transmission Date: 20110219
  Serious: No
  Sender: FDA-Public Use
  Company Number: US-PFIZER INC-2007063975

PATIENT
  Sex: Female
  Weight: 64.4 kg

DRUGS (14)
  1. CHANTIX [Suspect]
     Indication: SMOKING CESSATION THERAPY
     Route: 048
     Dates: start: 20070301, end: 20070301
  2. LIPITOR [Concomitant]
  3. ATARAX [Concomitant]
  4. MONTELUKAST SODIUM [Concomitant]
  5. ZYRTEC [Concomitant]
  6. PANADEINE CO [Concomitant]
  7. CELEBREX [Concomitant]
  8. WELLBUTRIN XL [Concomitant]
  9. NEXIUM [Concomitant]
  10. AMBIEN [Concomitant]
  11. DIGOXIN [Concomitant]
  12. ADVAIR DISKUS 100/50 [Concomitant]
  13. VASOTEC [Concomitant]
  14. CYMBALTA [Concomitant]

REACTIONS (3)
  - DECREASED APPETITE [None]
  - FEELING ABNORMAL [None]
  - MALAISE [None]
